FAERS Safety Report 5485352-6 (Version None)
Quarter: 2007Q4

REPORT INFORMATION
  Report Type: 
  Country: None (occurrence: None)
  Receive Date: 20071002
  Receipt Date: 20070521
  Transmission Date: 20080405
  Serious: No
  Sender: FDA-Public Use
  Company Number: 2007041354

PATIENT
  Age: 46 Year
  Sex: Male
  Weight: 86 kg

DRUGS (2)
  1. DEPO-TESTOSTERONE [Suspect]
     Indication: BLOOD TESTOSTERONE DECREASED
     Dosage: 12 MG (12 MG)
     Dates: start: 20070501, end: 20070501
  2. AMITRIPTYLINE HCL [Concomitant]

REACTIONS (1)
  - DYSURIA [None]
